FAERS Safety Report 4477210-0 (Version None)
Quarter: 2004Q4

REPORT INFORMATION
  Report Type: 
  Country: None (occurrence: None)
  Receive Date: 20041013
  Receipt Date: 20040928
  Transmission Date: 20050328
  Serious: No
  Sender: FDA-Public Use
  Company Number: A01200404784

PATIENT
  Age: 70 Year
  Sex: Female

DRUGS (1)
  1. PLAVIX [Suspect]
     Indication: PERIPHERAL OCCLUSIVE DISEASE
     Dosage: 75 MG QD, ORAL
     Route: 048

REACTIONS (1)
  - DEEP VEIN THROMBOSIS [None]
